FAERS Safety Report 13092808 (Version 1)
Quarter: 2017Q1

REPORT INFORMATION
  Report Type: Spontaneous
  Country: US (occurrence: US)
  Receive Date: 20170106
  Receipt Date: 20170106
  Transmission Date: 20170428
  Serious: No
  Sender: FDA-Public Use
  Company Number: US-JNJFOC-20161224113

PATIENT
  Age: 25 Year
  Sex: Female
  Weight: 55.79 kg

DRUGS (3)
  1. CHILDRENS TYLENOL [Suspect]
     Active Substance: ACETAMINOPHEN
     Indication: EAR INFECTION
     Dosage: 6HOURS APART
     Route: 048
     Dates: start: 20161226
  2. CHILDRENS TYLENOL [Suspect]
     Active Substance: ACETAMINOPHEN
     Indication: PAIN
     Dosage: 6HOURS APART
     Route: 048
     Dates: start: 20161226
  3. CEPHALEXINE [Concomitant]
     Active Substance: CEPHALEXIN
     Indication: EAR INFECTION
     Dosage: DAY 1/2
     Route: 065
     Dates: start: 20161224

REACTIONS (3)
  - Off label use [Unknown]
  - Drug prescribing error [Unknown]
  - Exposure during pregnancy [Unknown]

NARRATIVE: CASE EVENT DATE: 20161226
